FAERS Safety Report 4286822-9 (Version None)
Quarter: 2004Q1

REPORT INFORMATION
  Report Type: 
  Country: None (occurrence: None)
  Receive Date: 20040206
  Receipt Date: 20040128
  Transmission Date: 20041129
  Serious: Yes (Hospitalization)
  Sender: FDA-Public Use
  Company Number: US-ROCHE-357492

PATIENT
  Age: 36 Year
  Sex: Male

DRUGS (1)
  1. VESANOID [Suspect]
     Indication: ACUTE PROMYELOCYTIC LEUKAEMIA
     Route: 048

REACTIONS (4)
  - RASH [None]
  - RETINOIC ACID SYNDROME [None]
  - SWOLLEN TONGUE [None]
  - TONGUE ULCERATION [None]
